FAERS Safety Report 5257969-5 (Version None)
Quarter: 2007Q1

REPORT INFORMATION
  Report Type: 
  Country: None (occurrence: None)
  Receive Date: 20070307
  Receipt Date: 20061115
  Transmission Date: 20070707
  Serious: No
  Sender: FDA-Public Use
  Company Number: US-GLAXOSMITHKLINE-A0627665A

PATIENT
  Age: 40 Year
  Sex: Female

DRUGS (3)
  1. REQUIP [Suspect]
     Indication: RESTLESS LEGS SYNDROME
     Dosage: .5MG PER DAY
     Route: 048
     Dates: start: 20061101
  2. BENICAR [Concomitant]
  3. MULTI-VITAMIN [Concomitant]

REACTIONS (2)
  - EXPIRED DRUG ADMINISTERED [None]
  - NAUSEA [None]
